FAERS Safety Report 7522808-6 (Version None)
Quarter: 2011Q2

REPORT INFORMATION
  Report Type: 
  Country: None (occurrence: None)
  Receive Date: 20110603
  Receipt Date: 20110526
  Transmission Date: 20111010
  Serious: Yes (Hospitalization)
  Sender: FDA-Public Use
  Company Number: FR-PFIZER INC-2011114712

PATIENT
  Age: 68 Year
  Sex: Female
  Weight: 55 kg

DRUGS (11)
  1. MOTILIUM [Concomitant]
     Indication: PROPHYLAXIS
     Dosage: UNK
     Route: 048
     Dates: start: 20110407
  2. BEVACIZUMAB [Suspect]
     Indication: GLIOBLASTOMA
     Dosage: 580 MG, UNK
     Route: 042
     Dates: start: 20100825, end: 20110505
  3. SPASFON [Concomitant]
     Indication: PROPHYLAXIS
     Dosage: UNK
     Route: 048
     Dates: start: 20110201
  4. POTASSIUM CHLORIDE [Concomitant]
     Indication: PROPHYLAXIS
     Dosage: UNK
     Route: 048
     Dates: start: 20101101
  5. LEXOMIL [Concomitant]
     Indication: INSOMNIA
     Dosage: UNK
     Route: 048
     Dates: start: 20100701
  6. ACETAMINOPHEN [Concomitant]
     Indication: PAIN
     Dosage: UNK
     Route: 048
     Dates: start: 20100701
  7. VALSARTAN [Concomitant]
     Indication: HYPERTENSION
     Dosage: UNK
     Route: 048
     Dates: start: 20101101
  8. LOVENOX [Concomitant]
     Indication: PROPHYLAXIS
     Dosage: UNK
     Route: 058
     Dates: start: 20101101
  9. IRINOTECAN HCL [Suspect]
     Indication: GLIOBLASTOMA
     Dosage: 190 MG, UNK
     Route: 042
     Dates: start: 20100825, end: 20110505
  10. LIORESAL [Concomitant]
     Indication: MUSCLE SPASTICITY
     Dosage: UNK
     Route: 048
     Dates: start: 20110421
  11. MEDROL [Concomitant]
     Indication: BRAIN OEDEMA
     Dosage: UNK
     Route: 048
     Dates: start: 20100701

REACTIONS (1)
  - LUNG DISORDER [None]
